FAERS Safety Report 20074829 (Version 1)
Quarter: 2021Q4

REPORT INFORMATION
  Report Type: Spontaneous
  Country: US (occurrence: US)
  Receive Date: 20211116
  Receipt Date: 20211116
  Transmission Date: 20220303
  Serious: No
  Sender: FDA-Public Use
  Company Number: US-SANOFI-00840288

PATIENT
  Age: 80 Year

DRUGS (1)
  1. CAMPATH [Suspect]
     Active Substance: ALEMTUZUMAB
     Indication: T-cell lymphoma
     Dosage: 30 MG, 3X PER  WEEK

REACTIONS (1)
  - Off label use [Unknown]
